FAERS Safety Report 26145780 (Version 1)
Quarter: 2025Q4

REPORT INFORMATION
  Report Type: Spontaneous
  Country: US (occurrence: US)
  Receive Date: 20251211
  Receipt Date: 20251211
  Transmission Date: 20260118
  Serious: No
  Sender: SANOFI AVENTIS
  Company Number: US-SA-2025SA367527

PATIENT
  Sex: Female
  Weight: 95.91 kg

DRUGS (1)
  1. DUPIXENT [Suspect]
     Active Substance: DUPILUMAB
     Indication: Dermatitis atopic
     Dosage: 300 MG, QOW, (300 MG SUBCUTANEOUSLYEVERY 2 WEEKS)
     Route: 058

REACTIONS (1)
  - Gastrointestinal disorder [Unknown]
